FAERS Safety Report 7305511-7 (Version None)
Quarter: 2011Q1

REPORT INFORMATION
  Report Type: 
  Country: None (occurrence: None)
  Receive Date: 20110222
  Receipt Date: 20110216
  Transmission Date: 20110831
  Serious: Yes (Hospitalization)
  Sender: FDA-Public Use
  Company Number: NL-AMGEN-NLDNI2011009262

PATIENT
  Age: 63 Year
  Sex: Male
  Weight: 71.3 kg

DRUGS (8)
  1. CHEMOTHERAPEUTICS NOS [Concomitant]
     Dosage: UNK
     Dates: start: 20070911
  2. CHEMOTHERAPEUTICS NOS [Concomitant]
     Dosage: UNK
     Dates: start: 20070822
  3. CHEMOTHERAPEUTICS NOS [Concomitant]
     Dosage: UNK
     Dates: start: 20071003
  4. TEMAZEPAM [Concomitant]
     Dosage: UNK
     Route: 048
     Dates: start: 20070801
  5. DARBEPOETIN ALFA [Suspect]
     Indication: RENAL FAILURE CHRONIC
     Dosage: 150 A?G, QWK
     Route: 058
     Dates: start: 20070824, end: 20071002
  6. CHEMOTHERAPEUTICS NOS [Concomitant]
     Dosage: UNK UNK, 3 TIMES/WK
     Dates: start: 20070711
  7. CHEMOTHERAPEUTICS NOS [Concomitant]
     Dosage: UNK
     Dates: start: 20070811
  8. IRON                               /00023503/ [Concomitant]
     Dosage: UNK
     Route: 048
     Dates: start: 20070821, end: 20071001

REACTIONS (2)
  - MYOCARDIAL INFARCTION [None]
  - ANAEMIA [None]
